FAERS Safety Report 17728212 (Version 1)
Quarter: 2020Q2

REPORT INFORMATION
  Report Type: Spontaneous
  Country: US (occurrence: US)
  Receive Date: 20200430
  Receipt Date: 20200430
  Transmission Date: 20200714
  Serious: No
  Sender: FDA-Public Use
  Company Number: US-ABBVIE-19K-163-3197733-00

PATIENT
  Sex: Female

DRUGS (1)
  1. CREON [Suspect]
     Active Substance: PANCRELIPASE AMYLASE\PANCRELIPASE LIPASE\PANCRELIPASE PROTEASE
     Indication: PRODUCT USED FOR UNKNOWN INDICATION
     Route: 048

REACTIONS (10)
  - Nausea [Recovering/Resolving]
  - Gastrointestinal disorder [Unknown]
  - Abdominal discomfort [Unknown]
  - Influenza [Unknown]
  - Cystic fibrosis [Unknown]
  - Dyspepsia [Unknown]
  - Fatigue [Unknown]
  - Hypertension [Unknown]
  - Frequent bowel movements [Unknown]
  - Constipation [Unknown]
